FAERS Safety Report 21980926 (Version 3)
Quarter: 2023Q1

REPORT INFORMATION
  Report Type: Report from Study
  Country: US (occurrence: US)
  Receive Date: 20230211
  Receipt Date: 20230302
  Transmission Date: 20230417
  Serious: Yes (Hospitalization)
  Sender: FDA-Public Use
  Company Number: US-TAKEDA-2023TUS005078

PATIENT
  Sex: Male
  Weight: 100 kg

DRUGS (7)
  1. HUMAN IMMUNOGLOBULIN G [Suspect]
     Active Substance: HUMAN IMMUNOGLOBULIN G
     Indication: Myositis
     Dosage: 2000 MILLIGRAM, Q4WEEKS
     Route: 042
     Dates: start: 20230110
  2. HUMAN IMMUNOGLOBULIN G [Suspect]
     Active Substance: HUMAN IMMUNOGLOBULIN G
     Dosage: 2000 MILLIGRAM/KILOGRAM, Q4WEEKS
     Route: 042
     Dates: start: 20230110
  3. PREDNISONE [Suspect]
     Active Substance: PREDNISONE
     Indication: Product used for unknown indication
     Dosage: 60 MILLIGRAM, QD
     Route: 065
  4. PREDNISONE [Suspect]
     Active Substance: PREDNISONE
     Dosage: 30 MILLIGRAM
     Route: 065
  5. PANTOPRAZOLE SODIUM [Concomitant]
     Active Substance: PANTOPRAZOLE SODIUM
     Dosage: UNK
  6. TRAZODONE [Concomitant]
     Active Substance: TRAZODONE HYDROCHLORIDE
     Dosage: UNK
  7. TRAZODONE HCL [Concomitant]
     Active Substance: TRAZODONE HYDROCHLORIDE

REACTIONS (11)
  - Dyspnoea [Unknown]
  - COVID-19 [Unknown]
  - Therapy non-responder [Unknown]
  - Drug intolerance [Unknown]
  - Palpitations [Unknown]
  - Gait disturbance [Unknown]
  - Weight decreased [Unknown]
  - Condition aggravated [Unknown]
  - Asthenia [Not Recovered/Not Resolved]
  - Insomnia [Unknown]
  - Anxiety [Unknown]
